FAERS Safety Report 7997037-2 (Version None)
Quarter: 2011Q4

REPORT INFORMATION
  Report Type: 
  Country: None (occurrence: None)
  Receive Date: 20111221
  Receipt Date: 20111214
  Transmission Date: 20120403
  Serious: Yes (Other)
  Sender: FDA-Public Use
  Company Number: PHHY2011IN104102

PATIENT
  Age: 2 Year
  Sex: Female

DRUGS (1)
  1. PIPERACILLIN AND TAZOBACTAM [Suspect]
     Indication: BRONCHOPNEUMONIA
     Dosage: 300 MG/KG, QD
     Route: 042

REACTIONS (7)
  - USE OF ACCESSORY RESPIRATORY MUSCLES [None]
  - ELECTROCARDIOGRAM ST SEGMENT DEPRESSION [None]
  - BRADYCARDIA [None]
  - METABOLIC ALKALOSIS [None]
  - HYPOKALAEMIA [None]
  - BLOOD PRESSURE INCREASED [None]
  - RALES [None]
